FAERS Safety Report 21171111 (Version 1)
Quarter: 2022Q3

REPORT INFORMATION
  Report Type: Spontaneous
  Country: ES (occurrence: ES)
  Receive Date: 20220804
  Receipt Date: 20220804
  Transmission Date: 20221027
  Serious: Yes (Disabling, Other)
  Sender: FDA-Public Use
  Company Number: ES-SA-SAC20220802001703

PATIENT
  Age: 79 Year
  Sex: Female

DRUGS (1)
  1. LANTUS [Suspect]
     Active Substance: INSULIN GLARGINE
     Indication: Type 1 diabetes mellitus
     Dosage: 24 IU, QD
     Route: 058

REACTIONS (7)
  - Gait inability [Not Recovered/Not Resolved]
  - Nephrolithiasis [Unknown]
  - Dizziness [Unknown]
  - Blood pressure increased [Unknown]
  - Urinary tract infection [Unknown]
  - Foreign body in gastrointestinal tract [Unknown]
  - Calculus bladder [Unknown]
